FAERS Safety Report 5048652-X (Version None)
Quarter: 2006Q3

REPORT INFORMATION
  Report Type: 
  Country: None (occurrence: None)
  Receive Date: 20060705
  Receipt Date: 20060614
  Transmission Date: 20061208
  Serious: Yes (Other)
  Sender: FDA-Public Use
  Company Number: FI200606003821

PATIENT
  Age: 37 Year
  Sex: Male

DRUGS (4)
  1. CYMBALTA [Suspect]
     Indication: DEPRESSION
     Dosage: 90 MG, DAILY (1/D), ORAL
     Route: 048
     Dates: start: 20060309
  2. QUETIAPINE FUMARATE [Concomitant]
  3. ZOPICLONE (ZOPICLONE) [Concomitant]
  4. PROPRANOLOL [Concomitant]

REACTIONS (11)
  - ABDOMINAL PAIN UPPER [None]
  - AGGRESSION [None]
  - CHILLS [None]
  - DIARRHOEA [None]
  - DYSPEPSIA [None]
  - DYSURIA [None]
  - EYE PAIN [None]
  - FEELING COLD [None]
  - FLATULENCE [None]
  - HEADACHE [None]
  - HYPERHIDROSIS [None]
